FAERS Safety Report 14727769 (Version 1)
Quarter: 2018Q2

REPORT INFORMATION
  Report Type: Spontaneous
  Country: US (occurrence: US)
  Receive Date: 20180406
  Receipt Date: 20180406
  Transmission Date: 20180711
  Serious: Yes (Hospitalization)
  Sender: FDA-Public Use
  Company Number: US-BAYER-2018-062531

PATIENT
  Sex: Female

DRUGS (1)
  1. GADAVIST [Suspect]
     Active Substance: GADOBUTROL
     Indication: NUCLEAR MAGNETIC RESONANCE IMAGING
     Dosage: 8.5 ML, ONCE
     Route: 042

REACTIONS (6)
  - Dyspnoea [None]
  - Pruritus [None]
  - Syncope [None]
  - Dizziness [None]
  - Urticaria [None]
  - Feeling hot [None]
